FAERS Safety Report 6151803-7 (Version None)
Quarter: 2009Q2

REPORT INFORMATION
  Report Type: 
  Country: None (occurrence: None)
  Receive Date: 20090410
  Receipt Date: 20090331
  Transmission Date: 20091009
  Serious: Yes (Disabling, Other)
  Sender: FDA-Public Use
  Company Number: US-PFIZER INC-2003016659

PATIENT
  Sex: Male
  Weight: 81 kg

DRUGS (11)
  1. LIPITOR [Suspect]
     Indication: BLOOD CHOLESTEROL INCREASED
     Dosage: 10 MG, 1X/DAY
     Route: 048
     Dates: start: 20000301, end: 20090301
  2. TRICOR [Suspect]
     Indication: BLOOD CHOLESTEROL INCREASED
     Route: 048
     Dates: start: 19990101, end: 20030101
  3. ALEVE [Suspect]
     Indication: ARTHRALGIA
     Dosage: FREQUENCY: 2X/DAY, EVERYDAY;
     Dates: end: 20081201
  4. TYLENOL [Suspect]
     Indication: HEADACHE
     Dosage: FREQUENCY: EVERYDAY;
     Dates: end: 20090301
  5. COLESTIPOL HCL [Concomitant]
     Route: 048
  6. EZETIMIBE [Concomitant]
     Route: 048
     Dates: start: 20030101
  7. ZETIA [Concomitant]
     Indication: BLOOD CHOLESTEROL
     Dosage: 10 MG, 1X/DAY
  8. WELCHOL [Concomitant]
     Indication: BLOOD CHOLESTEROL
     Dosage: 625 MG, 3X/DAY
  9. ALPHAGAN [Concomitant]
     Indication: GLAUCOMA
     Dosage: 1 UNK, UNK
  10. ACETYLSALICYLIC ACID [Concomitant]
     Dosage: 81 MG, UNK
  11. NEXIUM [Concomitant]
     Indication: BARRETT'S OESOPHAGUS
     Dosage: 40 MG, 2X/DAY

REACTIONS (6)
  - BLOOD CHOLESTEROL ABNORMAL [None]
  - DRUG WITHDRAWAL HEADACHE [None]
  - HEADACHE [None]
  - LABILE BLOOD PRESSURE [None]
  - LOW DENSITY LIPOPROTEIN INCREASED [None]
  - NEUROPATHY PERIPHERAL [None]
